FAERS Safety Report 13801139 (Version 1)
Quarter: 2017Q3

REPORT INFORMATION
  Report Type: Spontaneous
  Country: ES (occurrence: ES)
  Receive Date: 20170727
  Receipt Date: 20170727
  Transmission Date: 20171127
  Serious: Yes (Hospitalization, Other)
  Sender: FDA-Public Use
  Company Number: ES-009507513-1703ESP009868

PATIENT
  Age: 83 Year
  Sex: Male
  Weight: 93 kg

DRUGS (4)
  1. KEYTRUDA [Suspect]
     Active Substance: PEMBROLIZUMAB
     Indication: NEUROENDOCRINE CARCINOMA OF THE SKIN
     Dosage: 2 MG/KG, Q3W
     Dates: start: 201604, end: 201702
  2. PREVENCOR [Concomitant]
     Active Substance: ATORVASTATIN CALCIUM
     Indication: HYPERCHOLESTEROLAEMIA
  3. SERTRALINE HYDROCHLORIDE. [Suspect]
     Active Substance: SERTRALINE HYDROCHLORIDE
     Indication: DEPRESSED MOOD
  4. ADIRO [Concomitant]
     Active Substance: ASPIRIN
     Indication: HYPERTENSION

REACTIONS (18)
  - Off label use [Unknown]
  - Metastases to peritoneum [Unknown]
  - Back pain [Recovering/Resolving]
  - Dry mouth [Recovered/Resolved]
  - Decreased appetite [Recovering/Resolving]
  - Metastases to heart [Unknown]
  - Pruritus [Recovering/Resolving]
  - Hyperhidrosis [Recovering/Resolving]
  - Speech disorder [Recovering/Resolving]
  - Eczema [Recovering/Resolving]
  - Pyrexia [Recovered/Resolved]
  - Influenza like illness [Recovering/Resolving]
  - Muscle fatigue [Not Recovered/Not Resolved]
  - Metastases to kidney [Unknown]
  - Eczema [Recovering/Resolving]
  - Dry eye [Recovered/Resolved]
  - Dysphagia [Recovering/Resolving]
  - Weight decreased [Recovering/Resolving]

NARRATIVE: CASE EVENT DATE: 2016
